FAERS Safety Report 25636149 (Version 2)
Quarter: 2025Q3

REPORT INFORMATION
  Report Type: Spontaneous
  Country: US (occurrence: US)
  Receive Date: 20250803
  Receipt Date: 20250825
  Transmission Date: 20251021
  Serious: No
  Sender: DR REDDYS
  Company Number: US-DRL-USA-USA/2025/07/009904

PATIENT
  Age: 85 Year
  Sex: Female

DRUGS (1)
  1. ALBENDAZOLE [Suspect]
     Active Substance: ALBENDAZOLE
     Indication: Hepatectomy
     Route: 065

REACTIONS (3)
  - Product dose omission issue [Unknown]
  - Product residue present [Unknown]
  - Product colour issue [Unknown]
